FAERS Safety Report 9579958 (Version 1)
Quarter: 2013Q3

REPORT INFORMATION
  Report Type: Spontaneous
  Country: SA (occurrence: None)
  Receive Date: 20130930
  Receipt Date: 20130930
  Transmission Date: 20140515
  Serious: Yes (Death)
  Sender: FDA-Public Use
  Company Number: 2013STPI000397

PATIENT
  Age: 25 Year
  Sex: Female

DRUGS (4)
  1. ABELCET [Suspect]
     Indication: ZYGOMYCOSIS
     Route: 042
     Dates: start: 2010
  2. PREDNISOLONE [Concomitant]
  3. IMIPENEM [Concomitant]
  4. VANCOMYCIN ( VANCOMYCIN HYDROCHLORIDE) [Concomitant]

REACTIONS (4)
  - Multi-organ failure [None]
  - General physical health deterioration [None]
  - Arm amputation [None]
  - Postoperative wound infection [None]
